FAERS Safety Report 8092313-X (Version None)
Quarter: 2012Q1

REPORT INFORMATION
  Report Type: 
  Country: None (occurrence: None)
  Receive Date: 20120129
  Receipt Date: 20111123
  Transmission Date: 20120608
  Serious: No
  Sender: FDA-Public Use
  Company Number: US-ABBOTT-11P-163-0877079-00

PATIENT
  Age: 37 Year
  Sex: Female

DRUGS (3)
  1. AMBIEN [Concomitant]
     Indication: PRODUCT USED FOR UNKNOWN INDICATION
     Dosage: AT BEDTIME AS NEEDED
  2. HUMIRA [Suspect]
     Indication: PSORIASIS
     Dates: start: 20111116, end: 20111116
  3. HUMIRA [Suspect]
     Dates: start: 20111123

REACTIONS (1)
  - INJECTION SITE PAIN [None]
